FAERS Safety Report 9912667 (Version 2)
Quarter: 2014Q2

REPORT INFORMATION
  Report Type: Spontaneous
  Country: CN (occurrence: None)
  Receive Date: 20140212
  Receipt Date: 20140609
  Transmission Date: 20141212
  Serious: Yes (Other)
  Sender: FDA-Public Use
  Company Number: 2014CN003013

PATIENT
  Sex: Male

DRUGS (3)
  1. ICLUSIG (PONATINIB) TABLET [Suspect]
     Indication: ACUTE LYMPHOCYTIC LEUKAEMIA
     Route: 048
     Dates: start: 20131206
  2. ICLUSIG (PONATINIB) TABLET [Suspect]
     Indication: CHROMOSOME ANALYSIS ABNORMAL
     Route: 048
     Dates: start: 20131206
  3. ICLUSIG (PONATINIB) TABLET [Suspect]
     Indication: ACUTE LYMPHOCYTIC LEUKAEMIA
     Route: 048
     Dates: start: 20131206

REACTIONS (5)
  - Cardiac disorder [None]
  - Bone pain [None]
  - Lymphocyte percentage increased [None]
  - Pain [None]
  - Quality of life decreased [None]
